FAERS Safety Report 23931825 (Version 1)
Quarter: 2024Q2

REPORT INFORMATION
  Report Type: Report from Study
  Country: TR (occurrence: TR)
  Receive Date: 20240603
  Receipt Date: 20240603
  Transmission Date: 20240716
  Serious: Yes (Other)
  Sender: FDA-Public Use
  Company Number: TR-JNJFOC-20240577398

PATIENT

DRUGS (1)
  1. REMICADE [Suspect]
     Active Substance: INFLIXIMAB
     Indication: Axial spondyloarthritis
     Route: 041

REACTIONS (5)
  - Lupus-like syndrome [Unknown]
  - Deep vein thrombosis [Unknown]
  - Ascites [Unknown]
  - Pleurisy [Unknown]
  - Pyrexia [Unknown]
